FAERS Safety Report 12670873 (Version 3)
Quarter: 2019Q1

REPORT INFORMATION
  Report Type: Spontaneous
  Country: US (occurrence: US)
  Receive Date: 20160822
  Receipt Date: 20190115
  Transmission Date: 20190417
  Serious: Yes (Disabling, Other)
  Sender: FDA-Public Use
  Company Number: US-JAZZ-2016-US-006316

PATIENT
  Sex: Female

DRUGS (13)
  1. HYDRALAZINE HYDROCHLORIDE. [Concomitant]
     Active Substance: HYDRALAZINE HYDROCHLORIDE
  2. VALSARTAN AND HYDROCHLOROTHIAZIDE [Concomitant]
     Active Substance: HYDROCHLOROTHIAZIDE\VALSARTAN
  3. FENOFIBRATE. [Concomitant]
     Active Substance: FENOFIBRATE
  4. ACETAMINOPHEN W/HYDROCODONE [Concomitant]
     Active Substance: ACETAMINOPHEN\HYDROCODONE
  5. AMLODIPINE BESYLATE. [Concomitant]
     Active Substance: AMLODIPINE BESYLATE
  6. TOPAMAX [Concomitant]
     Active Substance: TOPIRAMATE
  7. XYREM [Suspect]
     Active Substance: SODIUM OXYBATE
     Indication: NARCOLEPSY
     Dosage: 4.5 G, BID
     Route: 048
     Dates: start: 200410
  8. GABAPENTIN. [Concomitant]
     Active Substance: GABAPENTIN
  9. ZETIA [Concomitant]
     Active Substance: EZETIMIBE
  10. XYREM [Suspect]
     Active Substance: SODIUM OXYBATE
     Indication: CATAPLEXY
  11. MORPHINE SULF [Concomitant]
     Active Substance: MORPHINE SULFATE
  12. BISOPROLOL FUMARATE. [Concomitant]
     Active Substance: BISOPROLOL FUMARATE
  13. OMEPRAZOLE. [Concomitant]
     Active Substance: OMEPRAZOLE

REACTIONS (7)
  - Narcolepsy [Unknown]
  - Arthropod bite [Unknown]
  - Fall [Recovered/Resolved]
  - Intervertebral disc disorder [Unknown]
  - Cataplexy [Unknown]
  - Lyme disease [Not Recovered/Not Resolved]
  - Malaria [Unknown]

NARRATIVE: CASE EVENT DATE: 2009
